FAERS Safety Report 10137139 (Version 2)
Quarter: 2014Q2

REPORT INFORMATION
  Report Type: Spontaneous
  Country: US (occurrence: US)
  Receive Date: 20140429
  Receipt Date: 20140429
  Transmission Date: 20141212
  Serious: No
  Sender: FDA-Public Use
  Company Number: US-ABBVIE-14P-163-1207011-00

PATIENT
  Age: 86 Year
  Sex: Male
  Weight: 90.8 kg

DRUGS (20)
  1. ANDROGEL [Suspect]
     Indication: BLOOD TESTOSTERONE DECREASED
     Dosage: 2 PUMP
     Route: 061
     Dates: start: 201305, end: 201306
  2. ANDROGEL [Suspect]
     Dosage: 1 PUMP
     Route: 061
     Dates: start: 201306, end: 20140224
  3. ANDROGEL [Suspect]
     Dosage: 2 PUMPS
     Route: 061
     Dates: start: 20140224
  4. ASPIRIN [Concomitant]
     Indication: CARDIAC DISORDER
  5. VITAMIN D3/MAGNESIUM/CALCIUM [Concomitant]
     Indication: VITAMIN SUPPLEMENTATION
  6. METAMUCIL [Concomitant]
     Indication: SUPPLEMENTATION THERAPY
  7. LORAZEPAM [Concomitant]
     Indication: INSOMNIA
  8. MONTELUKAST [Concomitant]
     Indication: SEASONAL ALLERGY
  9. FISH OIL [Concomitant]
     Indication: VITAMIN SUPPLEMENTATION
  10. ALOCRIL [Concomitant]
     Indication: SEASONAL ALLERGY
  11. LATANOPROST [Concomitant]
     Indication: GLAUCOMA
     Dosage: EYE DROPS
     Route: 047
  12. VOLTAREN [Concomitant]
     Indication: ARTHROPATHY
  13. NIACIN [Concomitant]
     Indication: BLOOD CHOLESTEROL INCREASED
  14. POLICOSANOL [Concomitant]
     Indication: BLOOD CHOLESTEROL INCREASED
  15. SAW PALMETTO [Concomitant]
     Indication: PROSTATIC DISORDER
  16. MULTIVITAMIN [Concomitant]
     Indication: VITAMIN SUPPLEMENTATION
  17. GUGGULIPID [Concomitant]
     Indication: BLOOD CHOLESTEROL INCREASED
  18. SILVER COLLOIDAL [Concomitant]
     Indication: VITAMIN SUPPLEMENTATION
  19. VITAMIN E [Concomitant]
     Indication: VITAMIN SUPPLEMENTATION
  20. SELENIUM [Concomitant]
     Indication: VITAMIN SUPPLEMENTATION

REACTIONS (1)
  - Blood testosterone decreased [Not Recovered/Not Resolved]
